FAERS Safety Report 8967913 (Version 1)
Quarter: 2012Q4

REPORT INFORMATION
  Report Type: 
  Country: US (occurrence: US)
  Receive Date: 20121218
  Receipt Date: 20121218
  Transmission Date: 20130627
  Serious: No
  Sender: FDA-Public Use
  Company Number: US-GLAXOSMITHKLINE-A0976977A

PATIENT
  Age: 81 Year
  Sex: Female

DRUGS (5)
  1. COREG CR [Suspect]
     Indication: CARDIAC FAILURE CONGESTIVE
     Dosage: 40MG In the morning
     Route: 048
     Dates: start: 2011
  2. LANOXIN [Concomitant]
  3. SPIRONOLACTONE [Concomitant]
  4. COUMADIN [Concomitant]
  5. LASIX [Concomitant]

REACTIONS (2)
  - Dyspnoea [Unknown]
  - Dizziness [Unknown]
